FAERS Safety Report 6371927-9 (Version None)
Quarter: 2009Q3

REPORT INFORMATION
  Report Type: 
  Country: None (occurrence: None)
  Receive Date: 20090916
  Receipt Date: 20090916
  Transmission Date: 20100115
  Serious: Yes (Hospitalization)
  Sender: FDA-Public Use
  Company Number: None

PATIENT
  Age: 60 Year
  Sex: Female
  Weight: 152.7 kg

DRUGS (5)
  1. TAXOTERE [Suspect]
     Indication: UTERINE CANCER
     Dosage: 1200 MG IV Q2 WKS.
     Route: 042
     Dates: start: 20090909
  2. ALIMTA [Suspect]
     Indication: UTERINE CANCER
     Dosage: 96MG IV Q2 WKS
     Route: 042
     Dates: start: 20090909
  3. FOLIC ACID [Concomitant]
  4. VITAMIN B-12 [Concomitant]
  5. . [Concomitant]

REACTIONS (8)
  - BACTERIAL INFECTION [None]
  - BLOOD CULTURE POSITIVE [None]
  - DEHYDRATION [None]
  - DIARRHOEA [None]
  - NAUSEA [None]
  - NEUTROPHIL COUNT DECREASED [None]
  - PYREXIA [None]
  - VOMITING [None]
